FAERS Safety Report 25226814 (Version 2)
Quarter: 2025Q2

REPORT INFORMATION
  Report Type: Spontaneous
  Country: FR (occurrence: FR)
  Receive Date: 20250422
  Receipt Date: 20250501
  Transmission Date: 20250716
  Serious: Yes (Other)
  Sender: GILEAD
  Company Number: FR-GILEAD-2025-0710897

PATIENT
  Age: 38 Year
  Sex: Female

DRUGS (7)
  1. LENACAPAVIR [Suspect]
     Active Substance: LENACAPAVIR
     Indication: HIV infection
     Route: 065
     Dates: start: 20240925
  2. AMBISOME [Suspect]
     Active Substance: AMPHOTERICIN B
     Indication: Meningitis histoplasma
     Route: 065
     Dates: start: 202502
  3. ITRACONAZOLE [Concomitant]
     Active Substance: ITRACONAZOLE
     Dates: start: 20230325
  4. VALACYCLOVIR [Concomitant]
     Active Substance: VALACYCLOVIR HYDROCHLORIDE
     Dates: start: 20230626
  5. PENTAMIDINE [Concomitant]
     Active Substance: PENTAMIDINE
     Dates: start: 20230627
  6. ABACAVIR SULFATE\DOLUTEGRAVIR SODIUM\LAMIVUDINE [Concomitant]
     Active Substance: ABACAVIR SULFATE\DOLUTEGRAVIR SODIUM\LAMIVUDINE
     Dates: start: 20240212
  7. DOLUTEGRAVIR [Concomitant]
     Active Substance: DOLUTEGRAVIR
     Dates: start: 20240212

REACTIONS (3)
  - Meningitis histoplasma [Recovering/Resolving]
  - Maternal exposure during pregnancy [Unknown]
  - Product use in unapproved indication [Unknown]

NARRATIVE: CASE EVENT DATE: 20250201
